FAERS Safety Report 12853870 (Version 2)
Quarter: 2017Q3

REPORT INFORMATION
  Report Type: Report from Study
  Country: JP (occurrence: JP)
  Receive Date: 20161017
  Receipt Date: 20170925
  Transmission Date: 20171127
  Serious: Yes (Hospitalization)
  Sender: FDA-Public Use
  Company Number: JP-DSJP-DSJ-2016-130893

PATIENT

DRUGS (13)
  1. EDOXABAN [Suspect]
     Active Substance: EDOXABAN TOSYLATE
     Indication: ATRIAL FIBRILLATION
     Dosage: 30 MG, QD
     Route: 048
     Dates: start: 20150908, end: 20160205
  2. NITROPEN [Concomitant]
     Active Substance: NITROGLYCERIN
     Indication: ATRIAL FIBRILLATION
     Dosage: 0.3MG, AS NEEDED
     Route: 048
  3. PARIET [Concomitant]
     Active Substance: RABEPRAZOLE SODIUM
     Dosage: 10MG/DAY
     Route: 048
     Dates: start: 20150908
  4. REBAMIPIDE [Concomitant]
     Active Substance: REBAMIPIDE
     Dosage: 300MG/DAY
     Route: 048
     Dates: start: 20160203
  5. ELIQUIS [Concomitant]
     Active Substance: APIXABAN
     Dosage: 5MG/DAY
     Route: 048
     Dates: start: 20160206
  6. CALONAL [Concomitant]
     Active Substance: ACETAMINOPHEN
     Dosage: 300MG/DAY
     Route: 048
     Dates: start: 20160202, end: 20160527
  7. VERAPAMIL                          /00014302/ [Concomitant]
     Active Substance: VERAPAMIL HYDROCHLORIDE
     Dosage: 80MG/DAY
     Route: 048
     Dates: start: 20160205
  8. DIART [Suspect]
     Active Substance: AZOSEMIDE
     Dosage: 30MG/DAY
     Route: 048
     Dates: start: 20160322, end: 20161219
  9. VASOLAN                            /00014302/ [Concomitant]
     Active Substance: VERAPAMIL HYDROCHLORIDE
     Indication: ATRIAL FIBRILLATION
     Dosage: 5MG/DAY
     Route: 042
     Dates: start: 20160121, end: 20160121
  10. KETOPROFEN. [Concomitant]
     Active Substance: KETOPROFEN
     Dosage: 20MG/DAY
     Route: 050
     Dates: start: 20160202, end: 20160209
  11. HALFDIGOXIN [Concomitant]
     Active Substance: DIGOXIN
     Indication: ATRIAL FIBRILLATION
     Dosage: 0.125MG/DAY
     Route: 048
     Dates: start: 20160121, end: 20160122
  12. ALDACTONE A [Suspect]
     Active Substance: SPIRONOLACTONE
     Dosage: 25MG/DAY
     Route: 048
     Dates: start: 20160322
  13. ALSIODOL [Suspect]
     Active Substance: ALFACALCIDOL
     Dosage: 1UG/DAY
     Route: 048
     Dates: start: 20160115

REACTIONS (10)
  - Humerus fracture [Recovering/Resolving]
  - Hyperuricaemia [Recovered/Resolved]
  - Intracranial haematoma [Recovered/Resolved]
  - Contusion [Recovering/Resolving]
  - Back pain [Recovering/Resolving]
  - Chest pain [Recovering/Resolving]
  - Hyperuricaemia [Recovering/Resolving]
  - Chest pain [Recovering/Resolving]
  - Chest discomfort [Recovering/Resolving]
  - Back pain [Not Recovered/Not Resolved]

NARRATIVE: CASE EVENT DATE: 20151130
